FAERS Safety Report 8778752 (Version 2)
Quarter: 2012Q4

REPORT INFORMATION
  Report Type: 
  Country: CH (occurrence: CH)
  Receive Date: 20120912
  Receipt Date: 20120918
  Transmission Date: 20130627
  Serious: Yes (Hospitalization)
  Sender: FDA-Public Use
  Company Number: CH-GILEAD-2012-0060864

PATIENT
  Age: 81 Year
  Sex: Male

DRUGS (11)
  1. VIREAD [Suspect]
     Indication: HIV INFECTION
     Dosage: 245 mg, QOD
     Route: 048
     Dates: end: 20120621
  2. LYRICA [Suspect]
     Indication: PRODUCT USED FOR UNKNOWN INDICATION
     Dosage: 25 mg, TID
     Route: 048
     Dates: start: 201206, end: 201206
  3. NEXIUM [Suspect]
     Indication: PRODUCT USED FOR UNKNOWN INDICATION
     Dosage: 40 mg, UNK
     Route: 048
     Dates: start: 201206, end: 201206
  4. AUGMENTIN [Suspect]
     Indication: PRODUCT USED FOR UNKNOWN INDICATION
     Dosage: 625 mg, TID
     Route: 048
     Dates: start: 20120525, end: 20120610
  5. KALETRA [Concomitant]
     Indication: HIV INFECTION
     Dosage: 2 DF, BID
     Route: 048
     Dates: end: 20120621
  6. MARCOUMAR [Concomitant]
     Indication: PRODUCT USED FOR UNKNOWN INDICATION
     Dosage: UNK
     Route: 048
     Dates: start: 20120224
  7. MARCOUMAR [Concomitant]
     Dosage: UNK
     Route: 048
  8. TEMESTA                            /00273201/ [Concomitant]
     Indication: PRODUCT USED FOR UNKNOWN INDICATION
     Dosage: 0.5 DF, QD
     Route: 048
  9. PERENTEROL                         /00243701/ [Concomitant]
     Indication: PRODUCT USED FOR UNKNOWN INDICATION
     Dosage: 1 DF, TID
     Route: 048
     Dates: start: 201206, end: 201206
  10. CLEXANE [Concomitant]
     Indication: PRODUCT USED FOR UNKNOWN INDICATION
     Dosage: 80 mg, QD
     Route: 058
     Dates: start: 201206, end: 201206
  11. MAGNESIUM DIASPORAL                /00434501/ [Concomitant]
     Indication: PRODUCT USED FOR UNKNOWN INDICATION
     Dosage: 1 DF, QD
     Route: 048
     Dates: start: 201206, end: 201206

REACTIONS (4)
  - Tremor [Unknown]
  - Muscle contractions involuntary [Unknown]
  - Renal failure chronic [Recovering/Resolving]
  - Renal tubular necrosis [Unknown]
